FAERS Safety Report 15889286 (Version 1)
Quarter: 2019Q1

REPORT INFORMATION
  Report Type: Spontaneous
  Country: US (occurrence: US)
  Receive Date: 20190130
  Receipt Date: 20190130
  Transmission Date: 20190417
  Serious: Yes (Life-Threatening, Hospitalization)
  Sender: FDA-Public Use
  Company Number: None

PATIENT
  Age: 14 Year
  Sex: Female
  Weight: 60.3 kg

DRUGS (4)
  1. MICROPHYNELATE [Concomitant]
  2. TACROLIMUS. [Concomitant]
     Active Substance: TACROLIMUS
  3. METHYLPREDNISOLONE. [Suspect]
     Active Substance: METHYLPREDNISOLONE
     Indication: NEPHROTIC SYNDROME
     Route: 042
     Dates: start: 20181130
  4. CATERIZINE [Concomitant]

REACTIONS (4)
  - Swelling [None]
  - Vomiting [None]
  - Weight increased [None]
  - Abdominal pain upper [None]

NARRATIVE: CASE EVENT DATE: 20190124
